FAERS Safety Report 21483368 (Version 2)
Quarter: 2023Q1

REPORT INFORMATION
  Report Type: Report from Study
  Country: US (occurrence: US)
  Receive Date: 20221020
  Receipt Date: 20230117
  Transmission Date: 20230418
  Serious: Yes (Hospitalization)
  Sender: FDA-Public Use
  Company Number: US-ABBVIE-21K-163-4199138-00

PATIENT
  Age: 71 Year
  Sex: Male

DRUGS (2)
  1. IMBRUVICA [Suspect]
     Active Substance: IBRUTINIB
     Indication: Non-Hodgkin^s lymphoma
     Route: 048
     Dates: start: 20191122
  2. IMBRUVICA [Suspect]
     Active Substance: IBRUTINIB
     Indication: Non-Hodgkin^s lymphoma
     Route: 048

REACTIONS (10)
  - Dehydration [Recovered/Resolved]
  - Dental cleaning [Unknown]
  - Depression [Unknown]
  - Nail growth abnormal [Unknown]
  - Tooth disorder [Unknown]
  - Bone disorder [Unknown]
  - Onychoclasis [Recovering/Resolving]
  - Dehydration [Recovering/Resolving]
  - Diarrhoea [Unknown]
  - Tooth extraction [Unknown]

NARRATIVE: CASE EVENT DATE: 20211001
